FAERS Safety Report 7239414-3 (Version None)
Quarter: 2011Q1

REPORT INFORMATION
  Report Type: 
  Country: None (occurrence: None)
  Receive Date: 20110121
  Receipt Date: 20110113
  Transmission Date: 20110831
  Serious: Yes (Other)
  Sender: FDA-Public Use
  Company Number: US-CEPHALON-2011000156

PATIENT
  Sex: Female
  Weight: 64 kg

DRUGS (2)
  1. NUVIGIL [Suspect]
     Indication: DEPRESSED LEVEL OF CONSCIOUSNESS
     Route: 048
     Dates: start: 20101031, end: 20101101
  2. NUVIGIL [Suspect]
     Route: 048
     Dates: start: 20101108, end: 20101109

REACTIONS (5)
  - INFLUENZA LIKE ILLNESS [None]
  - JOINT SWELLING [None]
  - ERYTHEMA [None]
  - ARTHRALGIA [None]
  - VASCULITIS [None]
